FAERS Safety Report 4474413-6 (Version None)
Quarter: 2004Q4

REPORT INFORMATION
  Report Type: 
  Country: None (occurrence: None)
  Receive Date: 20041014
  Receipt Date: 20041004
  Transmission Date: 20050328
  Serious: Yes (Hospitalization, Other)
  Sender: FDA-Public Use
  Company Number: DE-ABBOTT-04P-062-0276717-00

PATIENT
  Sex: Female

DRUGS (12)
  1. VERAPAMIL [Suspect]
     Indication: ATRIAL FIBRILLATION
     Route: 048
     Dates: start: 20010101, end: 20040531
  2. CIPRALEX FILM-COATED TABLETS [Suspect]
     Indication: DEPRESSION
     Dates: start: 20010101, end: 20040531
  3. DIGITOXIN [Suspect]
     Indication: ATRIAL FIBRILLATION
     Dates: start: 19940101, end: 20040531
  4. SPIRONOLACTONE [Suspect]
     Indication: HYPERTONIA
     Dates: start: 19990101, end: 20040531
  5. VALDECOXIB [Suspect]
     Indication: BACK PAIN
     Dates: start: 20040405, end: 20040415
  6. ENALAPRIL MALEATE [Suspect]
     Indication: HYPERTONIA
     Dates: start: 19990101, end: 20040531
  7. FUROSEMIDE [Suspect]
     Indication: HYPERTONIA
     Dates: start: 19990101
  8. CLOPIDOGREL BISULFATE [Suspect]
     Indication: THROMBOSIS PROPHYLAXIS
     Dates: start: 20010101
  9. DONEPEZIL HCL [Suspect]
     Indication: DEMENTIA ALZHEIMER'S TYPE
     Dates: start: 20010101
  10. INSULIN HUMAN [Concomitant]
     Indication: DRUG USE FOR UNKNOWN INDICATION
     Dates: start: 20000101
  11. LIPON ACID [Concomitant]
     Indication: DRUG USE FOR UNKNOWN INDICATION
  12. INSULIN ISOPHANE, HUMAN BIOSYNTHETIC [Concomitant]
     Indication: DRUG USE FOR UNKNOWN INDICATION
     Dates: start: 20000101

REACTIONS (11)
  - BACK PAIN [None]
  - BRADYCARDIA [None]
  - DIALYSIS [None]
  - DIZZINESS [None]
  - DRUG INTERACTION [None]
  - FLUID INTAKE REDUCED [None]
  - GENERAL PHYSICAL HEALTH DETERIORATION [None]
  - HYPERKALAEMIA [None]
  - NAUSEA [None]
  - RENAL FAILURE [None]
  - VOMITING [None]
